FAERS Safety Report 14181473 (Version 3)
Quarter: 2018Q1

REPORT INFORMATION
  Report Type: Spontaneous
  Country: US (occurrence: US)
  Receive Date: 20171112
  Receipt Date: 20180201
  Transmission Date: 20180508
  Serious: Yes (Other)
  Sender: FDA-Public Use
  Company Number: US-BAUSCH-BL-2017-028183

PATIENT
  Sex: Male
  Weight: 72.64 kg

DRUGS (6)
  1. RELISTOR [Suspect]
     Active Substance: METHYLNALTREXONE BROMIDE
     Indication: CONSTIPATION
     Dosage: THREE TABLET DAILY
     Route: 048
     Dates: end: 20170824
  2. RELISTOR [Suspect]
     Active Substance: METHYLNALTREXONE BROMIDE
     Indication: CONSTIPATION
     Dosage: USING BEFORE 27/DEC/2017
     Route: 058
     Dates: end: 201712
  3. REGLAN [Concomitant]
     Active Substance: METOCLOPRAMIDE HYDROCHLORIDE
     Indication: BOWEL MOVEMENT IRREGULARITY
  4. RELISTOR [Suspect]
     Active Substance: METHYLNALTREXONE BROMIDE
     Indication: CONSTIPATION
     Dosage: THREE TABLET DAILY
     Route: 048
     Dates: start: 20180103
  5. OXYCONTIN [Concomitant]
     Active Substance: OXYCODONE HYDROCHLORIDE
     Indication: BACK DISORDER
  6. REGLAN [Concomitant]
     Active Substance: METOCLOPRAMIDE HYDROCHLORIDE
     Indication: FLATULENCE
     Route: 048

REACTIONS (9)
  - Drug ineffective [Not Recovered/Not Resolved]
  - Headache [Recovered/Resolved]
  - Diarrhoea [Recovered/Resolved]
  - Constipation [Not Recovered/Not Resolved]
  - Weight decreased [Recovering/Resolving]
  - Hypoaesthesia [Recovered/Resolved]
  - Abdominal pain upper [Recovering/Resolving]
  - Dizziness [Recovered/Resolved]
  - Drug dose omission [Unknown]

NARRATIVE: CASE EVENT DATE: 2017
